FAERS Safety Report 12725020 (Version 1)
Quarter: 2016Q3

REPORT INFORMATION
  Report Type: Spontaneous
  Country: US (occurrence: US)
  Receive Date: 20160908
  Receipt Date: 20160908
  Transmission Date: 20161109
  Serious: No
  Sender: FDA-Public Use
  Company Number: US-PFIZER INC-2016417557

PATIENT
  Age: 50 Year
  Sex: Male
  Weight: 77.98 kg

DRUGS (2)
  1. LYRICA [Suspect]
     Active Substance: PREGABALIN
     Indication: MIGRAINE
     Dosage: 3000 MG, AS NEEDED
  2. LYRICA [Suspect]
     Active Substance: PREGABALIN
     Dosage: 600 MG, DAILY

REACTIONS (7)
  - Intentional overdose [Unknown]
  - Product use issue [Unknown]
  - Sedation [Unknown]
  - Mydriasis [Unknown]
  - Agitation [Unknown]
  - Intentional product misuse [Unknown]
  - Dysarthria [Unknown]
